FAERS Safety Report 23733929 (Version 4)
Quarter: 2024Q2

REPORT INFORMATION
  Report Type: Report from Study
  Country: US (occurrence: US)
  Receive Date: 20240412
  Receipt Date: 20240620
  Transmission Date: 20240716
  Serious: Yes (Hospitalization, Other)
  Sender: FDA-Public Use
  Company Number: US-ABBVIE-5673649

PATIENT
  Age: 72 Year
  Sex: Male

DRUGS (4)
  1. VENCLEXTA [Suspect]
     Active Substance: VENETOCLAX
     Indication: Acute myeloid leukaemia
     Dosage: 70 MG (2X10 MG AND 1X50 MG TABLETS) BY MOUTH ONCE A DAY FOR 2 WEEKS ON AND 2 WEEKS OFF WITH VIDAZ...
     Route: 048
     Dates: start: 20240125
  2. VENCLEXTA [Suspect]
     Active Substance: VENETOCLAX
     Indication: Acute myeloid leukaemia
     Dosage: FORM STRENGTH: 50 MILLIGRAM DRUG START DATE: 2024,
     Route: 048
     Dates: end: 202404
  3. VENCLEXTA [Suspect]
     Active Substance: VENETOCLAX
     Indication: Acute myeloid leukaemia
     Dosage: DRUG START AND END DATE : 2024, FORM STRENGTH: 20MG
     Route: 048
  4. VIDAZA [Concomitant]
     Active Substance: AZACITIDINE
     Indication: Product used for unknown indication

REACTIONS (17)
  - Joint swelling [Recovered/Resolved]
  - Impaired healing [Not Recovered/Not Resolved]
  - Constipation [Not Recovered/Not Resolved]
  - Platelet count decreased [Recovering/Resolving]
  - Haemoglobin decreased [Recovering/Resolving]
  - Polyarthritis [Unknown]
  - Back injury [Not Recovered/Not Resolved]
  - Investigation abnormal [Unknown]
  - White blood cell count decreased [Recovering/Resolving]
  - Red blood cell count decreased [Recovering/Resolving]
  - Dehydration [Recovering/Resolving]
  - Diarrhoea [Not Recovered/Not Resolved]
  - Nausea [Not Recovered/Not Resolved]
  - Skin laceration [Not Recovered/Not Resolved]
  - Leukaemia [Unknown]
  - Fatigue [Unknown]
  - Therapeutic product effect decreased [Unknown]

NARRATIVE: CASE EVENT DATE: 20240101
